FAERS Safety Report 9608358 (Version 2)
Quarter: 2014Q1

REPORT INFORMATION
  Report Type: Spontaneous
  Country: GB (occurrence: None)
  Receive Date: 20131007
  Receipt Date: 20140207
  Transmission Date: 20141002
  Serious: Yes (Other)
  Sender: FDA-Public Use
  Company Number: AUR-APL-2013-08134

PATIENT
  Sex: Male

DRUGS (1)
  1. RISPERIDONE (RISPERIDONE) [Suspect]
     Indication: BIPOLAR I DISORDER

REACTIONS (4)
  - Decreased appetite [None]
  - Burning sensation [None]
  - Insomnia [None]
  - Drug withdrawal syndrome [None]
